FAERS Safety Report 8509058-1 (Version None)
Quarter: 2012Q3

REPORT INFORMATION
  Report Type: 
  Country: None (occurrence: None)
  Receive Date: 20120702
  Receipt Date: 20120615
  Transmission Date: 20120928
  Serious: Yes (Hospitalization, Other)
  Sender: FDA-Public Use
  Company Number: 2012SP023559

PATIENT
  Age: 68 Year
  Sex: Male
  Weight: 95 kg

DRUGS (13)
  1. VICTRELIS [Suspect]
     Indication: HEPATITIS C
     Dosage: 800 MG;TID;
     Dates: start: 20110705, end: 20120321
  2. NEUPOGEN [Concomitant]
  3. PLAVIX [Concomitant]
  4. ALDACTONE [Concomitant]
  5. PANTOPRAZOLE [Concomitant]
  6. FOLIC ACID [Concomitant]
  7. TRAMADOL HCL [Concomitant]
  8. VIRAFERONPEG [Suspect]
     Indication: HEPATITIS C
     Dosage: 1.5 MCG/KG;QW;
     Dates: start: 20110608, end: 20120321
  9. REBETOL [Suspect]
     Indication: HEPATITIS C
     Dosage: 600 MG;QD;
     Dates: start: 20110308, end: 20120321
  10. OLMESARTAN MEDOXOMIL [Concomitant]
  11. LASIX [Concomitant]
  12. NEORECORMON [Concomitant]
  13. BISOPROLOL FUMARATE [Concomitant]

REACTIONS (4)
  - PULMONARY ARTERIAL HYPERTENSION [None]
  - HAEMATOTOXICITY [None]
  - LEFT VENTRICULAR DYSFUNCTION [None]
  - HEPATIC ENCEPHALOPATHY [None]
